FAERS Safety Report 14467666 (Version 1)
Quarter: 2018Q1

REPORT INFORMATION
  Report Type: Spontaneous
  Country: RU (occurrence: RU)
  Receive Date: 20180131
  Receipt Date: 20180131
  Transmission Date: 20180509
  Serious: Yes (Other)
  Sender: FDA-Public Use
  Company Number: RU-ASTRAZENECA-2018SE10981

PATIENT
  Age: 50 Year
  Sex: Male
  Weight: 65 kg

DRUGS (5)
  1. VEROSPIRON [Concomitant]
     Active Substance: SPIRONOLACTONE
  2. THROMBO ASS [Concomitant]
     Active Substance: ASPIRIN
  3. BETALOC ZOK [Concomitant]
     Active Substance: METOPROLOL SUCCINATE
  4. BRILINTA [Suspect]
     Active Substance: TICAGRELOR
     Indication: MYOCARDIAL INFARCTION
     Route: 048
     Dates: start: 201706
  5. TULIP (ATORVASTATIN CALCIUM) [Concomitant]
     Active Substance: ATORVASTATIN CALCIUM

REACTIONS (4)
  - Vascular stent thrombosis [Recovered/Resolved]
  - Blood viscosity increased [Unknown]
  - Blood cholesterol increased [Unknown]
  - Liver disorder [Unknown]

NARRATIVE: CASE EVENT DATE: 20170825
